FAERS Safety Report 15867387 (Version 3)
Quarter: 2019Q2

REPORT INFORMATION
  Report Type: Report from Study
  Country: PL (occurrence: PL)
  Receive Date: 20190125
  Receipt Date: 20190412
  Transmission Date: 20190711
  Serious: Yes (Other)
  Sender: FDA-Public Use
  Company Number: PL-CHIESI USA, INC.-PL-2019CHI000021

PATIENT

DRUGS (6)
  1. MIDANIUM [Concomitant]
     Active Substance: MIDAZOLAM HYDROCHLORIDE
     Indication: PREMEDICATION
     Dosage: 0.3 MG, SINGLE
     Dates: start: 20190112, end: 20190112
  2. CUROSURF [Suspect]
     Active Substance: PORACTANT ALFA
     Indication: OFF LABEL USE
  3. GLUCOSE [Concomitant]
     Active Substance: DEXTROSE
     Indication: PREMEDICATION
     Dosage: 16.2 G, UNK
     Dates: start: 20190112, end: 20190112
  4. CAFFEINE CITRATE. [Concomitant]
     Active Substance: CAFFEINE CITRATE
     Indication: PREMATURE BABY
     Dosage: 36 MG, UNK
     Dates: start: 20190110, end: 20190110
  5. CAFFEINE CITRATE. [Concomitant]
     Active Substance: CAFFEINE CITRATE
     Indication: RESPIRATORY DISORDER
     Dosage: 9 MG, QD
  6. CUROSURF [Suspect]
     Active Substance: PORACTANT ALFA
     Indication: PO2 DECREASED
     Dosage: 4.5 ML, SINGLE
     Route: 039
     Dates: start: 20190112, end: 20190112

REACTIONS (2)
  - Neonatal hypoxia [Recovered/Resolved]
  - Off label use [Unknown]

NARRATIVE: CASE EVENT DATE: 20190112
